FAERS Safety Report 5400684-5 (Version None)
Quarter: 2007Q3

REPORT INFORMATION
  Report Type: 
  Country: None (occurrence: None)
  Receive Date: 20070730
  Receipt Date: 20070718
  Transmission Date: 20080115
  Serious: Yes (Hospitalization, Other)
  Sender: FDA-Public Use
  Company Number: US-ELI_LILLY_AND_COMPANY-US200707004625

PATIENT
  Age: 32 Year
  Sex: Female

DRUGS (2)
  1. GEMZAR [Suspect]
     Indication: LYMPHOMA
     Dosage: UNK, OTHER
     Dates: start: 20070501, end: 20070701
  2. NAVELBINE [Concomitant]
     Indication: LYMPHOMA
     Dosage: UNK, UNK
     Dates: start: 20070501, end: 20070701

REACTIONS (2)
  - MALIGNANT NEOPLASM PROGRESSION [None]
  - PLEURAL EFFUSION [None]
